FAERS Safety Report 4414919-9 (Version None)
Quarter: 2004Q3

REPORT INFORMATION
  Report Type: 
  Country: None (occurrence: None)
  Receive Date: 20040729
  Receipt Date: 20040714
  Transmission Date: 20050211
  Serious: Yes (Other)
  Sender: FDA-Public Use
  Company Number: TOS-000638

PATIENT
  Sex: Female

DRUGS (2)
  1. TOSITUMOMAB, IODINE I 131 TOSITUMOMAB (TOSITUMOMAB, IODINE I 131 TOSIT [Suspect]
     Indication: NON-HODGKIN'S LYMPHOMA
     Dosage: INTRAVENOUS; SEE IMAGE
     Route: 042
     Dates: start: 20000901, end: 20000901
  2. TOSITUMOMAB, IODINE I 131 TOSITUMOMAB (TOSITUMOMAB, IODINE I 131 TOSIT [Suspect]
     Indication: NON-HODGKIN'S LYMPHOMA
     Dosage: INTRAVENOUS; SEE IMAGE
     Route: 042
     Dates: start: 20000913, end: 20000913

REACTIONS (3)
  - CHROMOSOME ABNORMALITY [None]
  - HODGKIN'S DISEASE RECURRENT [None]
  - MYELODYSPLASTIC SYNDROME [None]
